FAERS Safety Report 17645918 (Version 5)
Quarter: 2021Q1

REPORT INFORMATION
  Report Type: Report from Study
  Country: US (occurrence: US)
  Receive Date: 20200408
  Receipt Date: 20210111
  Transmission Date: 20210419
  Serious: No
  Sender: FDA-Public Use
  Company Number: NVSC2020US093438

PATIENT
  Sex: Female

DRUGS (1)
  1. BEOVU [Suspect]
     Active Substance: BROLUCIZUMAB-DBLL
     Indication: PRODUCT USED FOR UNKNOWN INDICATION
     Dosage: UNK (LEFT EYE)
     Route: 047

REACTIONS (7)
  - Dysgraphia [Recovering/Resolving]
  - Eye pain [Unknown]
  - Asthenia [Unknown]
  - Fatigue [Unknown]
  - Visual field defect [Recovering/Resolving]
  - Vitreous floaters [Recovering/Resolving]
  - Visual impairment [Recovering/Resolving]
